FAERS Safety Report 12051391 (Version 1)
Quarter: 2016Q1

REPORT INFORMATION
  Report Type: Report from Study
  Country: US (occurrence: US)
  Receive Date: 20160209
  Receipt Date: 20160209
  Transmission Date: 20160526
  Serious: Yes (Other)
  Sender: FDA-Public Use
  Company Number: US-ABBVIE-15P-163-1440320-00

PATIENT
  Age: 60 Year
  Sex: Female

DRUGS (1)
  1. HUMIRA [Suspect]
     Active Substance: ADALIMUMAB
     Indication: PSORIASIS
     Route: 058
     Dates: start: 20150408, end: 20150717

REACTIONS (6)
  - Psoriasis [Not Recovered/Not Resolved]
  - Autoimmune hepatitis [Recovering/Resolving]
  - Infectious mononucleosis [Recovering/Resolving]
  - Liver injury [Recovering/Resolving]
  - Malignant melanoma [Unknown]
  - Fatigue [Unknown]

NARRATIVE: CASE EVENT DATE: 20150717
